FAERS Safety Report 25036342 (Version 1)
Quarter: 2025Q1

REPORT INFORMATION
  Report Type: Spontaneous
  Country: JP (occurrence: JP)
  Receive Date: 20250304
  Receipt Date: 20250304
  Transmission Date: 20250409
  Serious: Yes (Death, Hospitalization, Disabling, Other)
  Sender: MERCK SHARP & DOHME LLC
  Company Number: JP-MSD-2410JPN004296J

PATIENT
  Age: 82 Year
  Sex: Male
  Weight: 60.4 kg

DRUGS (2)
  1. KEYTRUDA [Suspect]
     Active Substance: PEMBROLIZUMAB
     Indication: Bladder cancer
     Dosage: DOSE DESCRIPTION : 200MG ONCE EVERY 3 WEEKS FOR 30MIN.
     Dates: start: 20221021, end: 20221021
  2. KEYTRUDA [Suspect]
     Active Substance: PEMBROLIZUMAB
     Indication: Bladder cancer
     Dosage: DOSE DESCRIPTION : 200MG ONCE EVERY 3 WEEKS FOR 30MIN.
     Dates: start: 20221115, end: 20221115

REACTIONS (4)
  - Prostate cancer [Fatal]
  - Immune-mediated myositis [Recovering/Resolving]
  - Pneumonia aspiration [Unknown]
  - Inappropriate schedule of product administration [Unknown]

NARRATIVE: CASE EVENT DATE: 20221115
